FAERS Safety Report 11098958 (Version 1)
Quarter: 2015Q2

REPORT INFORMATION
  Report Type: Spontaneous
  Country: GB (occurrence: GB)
  Receive Date: 20150508
  Receipt Date: 20150508
  Transmission Date: 20150821
  Serious: Yes (Other)
  Sender: FDA-Public Use
  Company Number: GB-009507513-1505GBR002017

PATIENT
  Age: 60 Year
  Sex: Male
  Weight: 85 kg

DRUGS (17)
  1. SITAGLIPTIN PHOSPHATE [Suspect]
     Active Substance: SITAGLIPTIN PHOSPHATE
     Dosage: 50 MG, QD
     Route: 048
     Dates: start: 20150326
  2. CETIRIZINE HYDROCHLORIDE. [Concomitant]
     Active Substance: CETIRIZINE HYDROCHLORIDE
     Dosage: ONE TO BE TAKEN DAILY.
     Dates: start: 20140722
  3. SERETIDE [Concomitant]
     Active Substance: FLUTICASONE FUROATE\SALMETEROL XINAFOATE
     Dosage: TWO PUFFS TWICE A DAY
     Dates: start: 20140722
  4. ACETAMINOPHEN AND CODEINE [Concomitant]
     Active Substance: ACETAMINOPHEN\CODEINE PHOSPHATE
     Dosage: TAKE 2 AT NIGHT TIME
     Dates: start: 20140722
  5. GLICLAZIDE [Concomitant]
     Active Substance: GLICLAZIDE
     Indication: DIABETES MELLITUS
     Dosage: ONE DAILY WITH FOOD FOR DIABETES
     Dates: start: 20140722
  6. ALBUTEROL SULFATE. [Concomitant]
     Active Substance: ALBUTEROL SULFATE
     Dosage: 1 -2 PUFFS AS REQUIRED
     Dates: start: 20140722
  7. CROMOLYN SODIUM. [Concomitant]
     Active Substance: CROMOLYN SODIUM
     Dosage: AS NEEDED
     Dates: start: 20140722
  8. AMOXICILLIN. [Concomitant]
     Active Substance: AMOXICILLIN
     Dosage: 1 DF, TID
     Dates: start: 20150209, end: 20150216
  9. AVEENO (OAT) [Concomitant]
     Dosage: USE AS DIRECTED
     Dates: start: 20140722
  10. LANSOPRAZOLE. [Concomitant]
     Active Substance: LANSOPRAZOLE
     Dosage: 1 DF, QD
     Dates: start: 20140722
  11. SERTRALINE HYDROCHLORIDE. [Concomitant]
     Active Substance: SERTRALINE HYDROCHLORIDE
     Dosage: 1 DF, QD
     Dates: start: 20150123
  12. VITAMIN B (UNSPECIFIED) [Concomitant]
     Dosage: 2 DF, QD
     Dates: start: 20140722
  13. LISINOPRIL. [Concomitant]
     Active Substance: LISINOPRIL
     Dosage: 1 DF, QD
     Dates: start: 20140722
  14. POLYETHYLENE GLYCOL [Concomitant]
     Active Substance: POLYETHYLENE GLYCOLS
     Dosage: 1 SACHETS AS NECESSARY.
     Dates: start: 20140722
  15. METFORMIN [Concomitant]
     Active Substance: METFORMIN HYDROCHLORIDE
     Dosage: 1 DF, BID
     Dates: start: 20140722
  16. GABAPENTIN. [Concomitant]
     Active Substance: GABAPENTIN
     Dosage: TAKE 2 TABLETS THREE TIMES A DAY AND INCREASE B...
     Dates: start: 20140722
  17. ATORVASTATIN [Concomitant]
     Active Substance: ATORVASTATIN
     Dosage: ONE TO BE TAKEN AT NIGHT
     Dates: start: 20140722

REACTIONS (2)
  - Diplopia [Recovered/Resolved]
  - Vision blurred [Recovered/Resolved]

NARRATIVE: CASE EVENT DATE: 20150407
